FAERS Safety Report 24327841 (Version 1)
Quarter: 2024Q3

REPORT INFORMATION
  Report Type: Spontaneous
  Country: PR (occurrence: PR)
  Receive Date: 20240917
  Receipt Date: 20240917
  Transmission Date: 20241017
  Serious: Yes (Hospitalization, Other)
  Sender: BRISTOL MYERS SQUIBB
  Company Number: PR-BRISTOL-MYERS SQUIBB COMPANY-2024-146786

PATIENT
  Age: 60 Year
  Sex: Female

DRUGS (1)
  1. REVLIMID [Suspect]
     Active Substance: LENALIDOMIDE
     Indication: Diffuse large B-cell lymphoma
     Dosage: DAILY 21 DAYS/OFF 7
     Route: 048
     Dates: start: 202408

REACTIONS (4)
  - Pulmonary oedema [Unknown]
  - Swelling [Unknown]
  - Gait disturbance [Unknown]
  - Off label use [Unknown]

NARRATIVE: CASE EVENT DATE: 20240909
